FAERS Safety Report 13239301 (Version 13)
Quarter: 2017Q3

REPORT INFORMATION
  Report Type: Report from Study
  Country: US (occurrence: CA)
  Receive Date: 20170216
  Receipt Date: 20170929
  Transmission Date: 20171127
  Serious: Yes (Other)
  Sender: FDA-Public Use
  Company Number: US-SUNOVION-2017SUN000651

PATIENT
  Age: 72 Year
  Sex: Male

DRUGS (27)
  1. XOLAIR [Suspect]
     Active Substance: OMALIZUMAB
     Dosage: UNK; REGIMEN #9
     Route: 058
     Dates: start: 20170110
  2. XOLAIR [Suspect]
     Active Substance: OMALIZUMAB
     Dosage: UNK; REGIMEN #12
     Route: 058
     Dates: start: 20170221
  3. XOLAIR [Suspect]
     Active Substance: OMALIZUMAB
     Dosage: UNK; REGIMEN #14
     Route: 058
     Dates: start: 20170321
  4. XOLAIR [Suspect]
     Active Substance: OMALIZUMAB
     Dosage: UNK; REGIMEN #15
     Route: 058
     Dates: start: 20170404
  5. XOLAIR [Suspect]
     Active Substance: OMALIZUMAB
     Dosage: UNK; REGIMEN #20
     Route: 058
     Dates: start: 20170627
  6. XOLAIR [Suspect]
     Active Substance: OMALIZUMAB
     Dosage: UNK; REGIMEN #2
     Route: 058
     Dates: start: 20161003
  7. XOLAIR [Suspect]
     Active Substance: OMALIZUMAB
     Dosage: UNK; REGIMEN #3
     Route: 058
     Dates: start: 20161017
  8. XOLAIR [Suspect]
     Active Substance: OMALIZUMAB
     Dosage: UNK; REGIMEN #13
     Route: 058
     Dates: start: 20170307
  9. XOLAIR [Suspect]
     Active Substance: OMALIZUMAB
     Dosage: UNK; REGIMEN #22
     Route: 058
     Dates: start: 20170725
  10. VENTOLIN [Concomitant]
     Active Substance: ALBUTEROL SULFATE
     Dosage: UNK
  11. XOLAIR [Suspect]
     Active Substance: OMALIZUMAB
     Dosage: UNK; REGIMEN #10
     Route: 058
     Dates: start: 20170124
  12. PREDNISONE. [Concomitant]
     Active Substance: PREDNISONE
     Dosage: UNK
  13. XOLAIR [Suspect]
     Active Substance: OMALIZUMAB
     Dosage: UNK; REGIMEN #16
     Route: 058
     Dates: start: 20170418
  14. XOLAIR [Suspect]
     Active Substance: OMALIZUMAB
     Dosage: UNK; REGIMEN #17
     Route: 058
     Dates: start: 20170516
  15. XOLAIR [Suspect]
     Active Substance: OMALIZUMAB
     Dosage: UNK; REGIMEN #21
     Route: 058
     Dates: start: 20170711
  16. XOLAIR [Suspect]
     Active Substance: OMALIZUMAB
     Dosage: UNK; REGIMEN #4
     Route: 058
     Dates: start: 20161101
  17. XOLAIR [Suspect]
     Active Substance: OMALIZUMAB
     Dosage: UNK; REGIMEN #8
     Route: 058
     Dates: start: 20161229
  18. XOLAIR [Suspect]
     Active Substance: OMALIZUMAB
     Dosage: UNK; REGIMEN #18
     Route: 058
     Dates: start: 20170530
  19. GLYCOPYRROLATE. [Suspect]
     Active Substance: GLYCOPYRROLATE
     Indication: PRODUCT USED FOR UNKNOWN INDICATION
     Dosage: UNK
     Route: 065
  20. XOLAIR [Suspect]
     Active Substance: OMALIZUMAB
     Indication: ASTHMA
     Dosage: 225 MG, BIW REGIMEN #1
     Route: 058
     Dates: start: 20160921
  21. XOLAIR [Suspect]
     Active Substance: OMALIZUMAB
     Dosage: UNK; REGIMEN #7
     Route: 058
     Dates: start: 20161213
  22. XOLAIR [Suspect]
     Active Substance: OMALIZUMAB
     Dosage: UNK; REGIMEN #11
     Route: 058
     Dates: start: 20170207
  23. XOLAIR [Suspect]
     Active Substance: OMALIZUMAB
     Dosage: UNK; REGIMEN #5
     Route: 058
     Dates: start: 20161115
  24. XOLAIR [Suspect]
     Active Substance: OMALIZUMAB
     Dosage: UNK; REGIMEN #6
     Route: 058
     Dates: start: 20161129
  25. XOLAIR [Suspect]
     Active Substance: OMALIZUMAB
     Dosage: UNK; REGIMEN #19
     Route: 058
     Dates: start: 20170613
  26. XOLAIR [Suspect]
     Active Substance: OMALIZUMAB
     Dosage: UNK; REGIMEN #23
     Route: 058
     Dates: start: 20170808
  27. SYMBICORT [Concomitant]
     Active Substance: BUDESONIDE\FORMOTEROL FUMARATE DIHYDRATE
     Dosage: UNK

REACTIONS (5)
  - Drug ineffective [Unknown]
  - Dyspnoea [Unknown]
  - Respiratory rate increased [Unknown]
  - Forced expiratory volume decreased [Unknown]
  - Blood pressure increased [Not Recovered/Not Resolved]

NARRATIVE: CASE EVENT DATE: 20160921
